FAERS Safety Report 8305294-8 (Version None)
Quarter: 2012Q2

REPORT INFORMATION
  Report Type: 
  Country: None (occurrence: None)
  Receive Date: 20120423
  Receipt Date: 20120417
  Transmission Date: 20120825
  Serious: Yes (Hospitalization, Other)
  Sender: FDA-Public Use
  Company Number: JP-B.I. PHARMACEUTICALS,INC./RIDGEFIELD-2012-BP-06264NB

PATIENT
  Sex: Female
  Weight: 30 kg

DRUGS (6)
  1. PRADAXA [Suspect]
     Indication: ATRIAL FIBRILLATION
     Dosage: 220 MG
     Route: 048
     Dates: start: 20111201, end: 20120327
  2. PLETAL [Suspect]
     Indication: CEREBRAL INFARCTION
     Dosage: 100 MG
     Route: 048
     Dates: end: 20120327
  3. BISOPROLOL FUMARATE [Concomitant]
     Indication: CARDIAC FAILURE
     Dosage: 2.5 MG
     Route: 048
  4. CEFAZOLIN SODIUM [Concomitant]
     Indication: CONSTIPATION
     Route: 048
  5. LANIRAPID [Concomitant]
     Indication: CARDIAC FAILURE
     Dosage: 0.05 MG
     Route: 048
  6. MIRCERA [Concomitant]
     Indication: ANAEMIA
     Route: 058

REACTIONS (3)
  - COAGULATION TIME PROLONGED [None]
  - ANAEMIA [None]
  - INTESTINAL POLYP HAEMORRHAGE [None]
